FAERS Safety Report 6809559-8 (Version None)
Quarter: 2010Q2

REPORT INFORMATION
  Report Type: 
  Country: None (occurrence: None)
  Receive Date: 20100630
  Receipt Date: 20100617
  Transmission Date: 20101027
  Serious: Yes (Other)
  Sender: FDA-Public Use
  Company Number: PHHY2010CA40182

PATIENT
  Sex: Male

DRUGS (2)
  1. EXJADE [Suspect]
     Indication: THALASSAEMIA
     Dosage: UNK
  2. TRIENTINE [Concomitant]
     Indication: HEPATO-LENTICULAR DEGENERATION

REACTIONS (1)
  - BLOOD COPPER DECREASED [None]
